FAERS Safety Report 16573650 (Version 3)
Quarter: 2019Q3

REPORT INFORMATION
  Report Type: Spontaneous
  Country: GR (occurrence: GR)
  Receive Date: 20190715
  Receipt Date: 20190806
  Transmission Date: 20191004
  Serious: Yes (Other)
  Sender: FDA-Public Use
  Company Number: GR-PFIZER INC-2019288498

PATIENT
  Age: 68 Year
  Sex: Male

DRUGS (1)
  1. AMIODARONE HCL [Suspect]
     Active Substance: AMIODARONE HYDROCHLORIDE
     Dosage: 200 MG, BID
     Route: 065

REACTIONS (7)
  - Optic neuritis [Recovering/Resolving]
  - Blindness [Unknown]
  - Optic neuropathy [Recovering/Resolving]
  - Ocular hyperaemia [Unknown]
  - Colour blindness [Unknown]
  - Papilloedema [Recovering/Resolving]
  - Visual field defect [Unknown]
